FAERS Safety Report 12691498 (Version 5)
Quarter: 2018Q3

REPORT INFORMATION
  Report Type: Report from Study
  Country: US (occurrence: US)
  Receive Date: 20160826
  Receipt Date: 20180824
  Transmission Date: 20181010
  Serious: Yes (Hospitalization, Other)
  Sender: FDA-Public Use
  Company Number: US-ACTELION-A-NJ2015-124580

PATIENT
  Age: 70 Year
  Sex: Female
  Weight: 83.9 kg

DRUGS (8)
  1. UPTRAVI [Concomitant]
     Active Substance: SELEXIPAG
  2. DIOVAN [Concomitant]
     Active Substance: VALSARTAN
  3. VIAGRA [Concomitant]
     Active Substance: SILDENAFIL CITRATE
  4. TRACLEER [Suspect]
     Active Substance: BOSENTAN
     Dosage: UNK
     Route: 048
  5. TRACLEER [Suspect]
     Active Substance: BOSENTAN
     Indication: PULMONARY ARTERIAL HYPERTENSION
     Dosage: 125 MG, BID
     Route: 048
     Dates: start: 20100423
  6. SILDENAFIL. [Concomitant]
     Active Substance: SILDENAFIL
  7. ELIQUIS [Concomitant]
     Active Substance: APIXABAN
  8. NIFEDIPINE. [Concomitant]
     Active Substance: NIFEDIPINE

REACTIONS (11)
  - Anxiety [Unknown]
  - Hypotension [Unknown]
  - Dizziness [Unknown]
  - Red blood cell count decreased [Unknown]
  - Balance disorder [Unknown]
  - Loss of consciousness [Unknown]
  - Blood pressure increased [Unknown]
  - Dyspnoea [Unknown]
  - Transfusion [Unknown]
  - Gout [Unknown]
  - Infection [Unknown]
